FAERS Safety Report 4357443-4 (Version None)
Quarter: 2004Q2

REPORT INFORMATION
  Report Type: 
  Country: None (occurrence: None)
  Receive Date: 20040506
  Receipt Date: 20040427
  Transmission Date: 20050107
  Serious: Yes (Death)
  Sender: FDA-Public Use
  Company Number: THQ2004A00413

PATIENT
  Age: 52 Year
  Sex: Male

DRUGS (3)
  1. ACTOS [Suspect]
     Dosage: 45 MG (1 D) PER ORAL
     Route: 048
  2. LIPITOR [Concomitant]
  3. ALTACE [Concomitant]

REACTIONS (1)
  - PANCREATIC CARCINOMA [None]
